FAERS Safety Report 19583548 (Version 1)
Quarter: 2021Q3

REPORT INFORMATION
  Report Type: Spontaneous
  Country: US (occurrence: US)
  Receive Date: 20210720
  Receipt Date: 20210720
  Transmission Date: 20211014
  Serious: Yes (Hospitalization)
  Sender: FDA-Public Use
  Company Number: None

PATIENT
  Sex: Female

DRUGS (21)
  1. BISACODYL. [Concomitant]
     Active Substance: BISACODYL
  2. CALCIUM [Concomitant]
     Active Substance: CALCIUM
  3. CETAPHIL [Concomitant]
  4. BREZTRI AERO [Concomitant]
  5. HYOSCAMINE [Concomitant]
  6. IRON [Concomitant]
     Active Substance: IRON
  7. PROCHLORPER [Concomitant]
  8. MUCINEX [Concomitant]
     Active Substance: GUAIFENESIN
  9. PRILOSEC [Concomitant]
     Active Substance: OMEPRAZOLE MAGNESIUM
  10. HYDROMORPHON [Concomitant]
     Active Substance: HYDROMORPHONE
  11. COREG [Concomitant]
     Active Substance: CARVEDILOL
  12. SILDENAFIL 20 MG TAB [Suspect]
     Active Substance: SILDENAFIL
     Indication: PULMONARY HYPERTENSION
     Route: 048
  13. ASPIRIN. [Concomitant]
     Active Substance: ASPIRIN
  14. HALOPERIDOL. [Concomitant]
     Active Substance: HALOPERIDOL
  15. LANTUS [Concomitant]
     Active Substance: INSULIN GLARGINE
  16. LOSARTAN POT [Concomitant]
     Active Substance: LOSARTAN POTASSIUM
  17. QUETAPINE [Concomitant]
     Active Substance: QUETIAPINE
  18. SYMBICORT [Concomitant]
     Active Substance: BUDESONIDE\FORMOTEROL FUMARATE DIHYDRATE
  19. AZELASTINE. [Concomitant]
     Active Substance: AZELASTINE HYDROCHLORIDE
  20. LIPITOR [Concomitant]
     Active Substance: ATORVASTATIN CALCIUM
  21. TRAZODONE [Concomitant]
     Active Substance: TRAZODONE HYDROCHLORIDE

REACTIONS (2)
  - Peripheral swelling [None]
  - Intentional dose omission [None]
